FAERS Safety Report 7879446-5 (Version None)
Quarter: 2011Q4

REPORT INFORMATION
  Report Type: 
  Country: None (occurrence: None)
  Receive Date: 20111101
  Receipt Date: 20111021
  Transmission Date: 20120403
  Serious: Yes (Hospitalization, Other)
  Sender: FDA-Public Use
  Company Number: US-BAYER-2011-050426

PATIENT
  Age: 27 Year
  Sex: Female
  Weight: 68.027 kg

DRUGS (2)
  1. LORTAB [Concomitant]
  2. YAZ [Suspect]
     Dosage: UNK

REACTIONS (3)
  - CHOLECYSTECTOMY [None]
  - PAIN [None]
  - CHOLECYSTITIS CHRONIC [None]
